FAERS Safety Report 24054002 (Version 1)
Quarter: 2024Q3

REPORT INFORMATION
  Report Type: Spontaneous
  Country: ZA (occurrence: None)
  Receive Date: 20240705
  Receipt Date: 20240705
  Transmission Date: 20241017
  Serious: Yes (Hospitalization)
  Sender: ASTRAZENECA
  Company Number: 2024A150079

PATIENT
  Age: 9496 Day
  Sex: Female

DRUGS (10)
  1. BUDESONIDE\FORMOTEROL [Suspect]
     Active Substance: BUDESONIDE\FORMOTEROL
     Dosage: UNKNOWN
     Route: 055
  2. OPTISULIN CARTRIDGE [Concomitant]
  3. APIDRA CARTRIDGE [Concomitant]
  4. STOPAYNE [Concomitant]
  5. SINUCON [Concomitant]
  6. ADCO-LINCTOPENT [Concomitant]
  7. IBUPAIN BLISTER [Concomitant]
  8. KLARITHRAN MR [Concomitant]
  9. MUPIROCIN [Concomitant]
     Active Substance: MUPIROCIN
  10. LEVALBUTEROL HYDROCHLORIDE [Concomitant]
     Active Substance: LEVALBUTEROL HYDROCHLORIDE

REACTIONS (2)
  - Blood glucose increased [Unknown]
  - Wheezing [Unknown]
